FAERS Safety Report 25956983 (Version 2)
Quarter: 2025Q4

REPORT INFORMATION
  Report Type: Spontaneous
  Country: US (occurrence: US)
  Receive Date: 20251024
  Receipt Date: 20251205
  Transmission Date: 20260117
  Serious: No
  Sender: LUPIN
  Company Number: US-LUPIN PHARMACEUTICALS INC.-2025-09520

PATIENT

DRUGS (1)
  1. ALBUTEROL SULFATE [Suspect]
     Active Substance: ALBUTEROL SULFATE
     Indication: Asthma
     Dosage: 03-PUFF AS NEEDED, PRN

REACTIONS (5)
  - Product preparation error [Unknown]
  - Device breakage [Unknown]
  - Device leakage [Unknown]
  - Device delivery system issue [Unknown]
  - No adverse event [Unknown]
